FAERS Safety Report 5597375-7 (Version None)
Quarter: 2007Q4

REPORT INFORMATION
  Report Type: 
  Country: None (occurrence: None)
  Receive Date: 20071221
  Receipt Date: 20070928
  Transmission Date: 20080405
  Serious: No
  Sender: FDA-Public Use
  Company Number: SPV1-2007-04176

PATIENT
  Age: 45 Year
  Sex: Female
  Weight: 81.6 kg

DRUGS (7)
  1. VYVANSE [Suspect]
     Indication: ATTENTION DEFICIT/HYPERACTIVITY DISORDER
     Dosage: 70 MG, 1X/DAY:QD, ORAL
     Route: 048
     Dates: start: 20070906, end: 20070919
  2. AMBIEN CR [Concomitant]
  3. NEXIUM [Concomitant]
  4. NASONEX [Concomitant]
  5. PULMICORT [Concomitant]
  6. TYLENOL PM /00435101/ (DIPHENHYDRAMINE HYDROCHLORIDE, PARACETAMOL) [Concomitant]
  7. GLYCOLAX (MACROGOL) [Concomitant]

REACTIONS (4)
  - HYPERHIDROSIS [None]
  - NAUSEA [None]
  - OFF LABEL USE [None]
  - PSYCHOMOTOR HYPERACTIVITY [None]
